FAERS Safety Report 5373567-7 (Version None)
Quarter: 2007Q2

REPORT INFORMATION
  Report Type: 
  Country: None (occurrence: None)
  Receive Date: 20070626
  Receipt Date: 20070626
  Transmission Date: 20071010
  Serious: Yes (Hospitalization)
  Sender: FDA-Public Use
  Company Number: None

PATIENT
  Age: 32 Year
  Sex: Female

DRUGS (7)
  1. BEVACIZUMAB 10 MG/ KG [Suspect]
     Indication: GLIOBLASTOMA MULTIFORME
     Dosage: C 1/D 1 + C 1/ D 15
     Dates: start: 20070502, end: 20070625
  2. ETOPOSIDE 100 MG [Suspect]
     Dosage: D 1-21; OF 28 DAY CYCLE
     Dates: start: 20070502, end: 20070625
  3. KEPPRA [Concomitant]
  4. COLACE [Concomitant]
  5. DECADRON [Concomitant]
  6. MULTI-VITAMIN [Concomitant]
  7. FIBER [Concomitant]

REACTIONS (3)
  - DEEP VEIN THROMBOSIS [None]
  - FALL [None]
  - SKIN ULCER [None]
